FAERS Safety Report 4776990-4 (Version None)
Quarter: 2005Q3

REPORT INFORMATION
  Report Type: 
  Country: None (occurrence: None)
  Receive Date: 20050923
  Receipt Date: 20050912
  Transmission Date: 20060218
  Serious: Yes (Hospitalization)
  Sender: FDA-Public Use
  Company Number: US-GLAXOSMITHKLINE-A0573863A

PATIENT
  Age: 83 Year
  Sex: Female

DRUGS (6)
  1. SEREVENT [Suspect]
     Indication: DRUG USE FOR UNKNOWN INDICATION
     Dosage: 2PUFF TWICE PER DAY
     Route: 055
     Dates: start: 20020101
  2. FLONASE [Suspect]
     Dosage: 100MCG PER DAY
     Route: 045
  3. VITAMIN [Concomitant]
  4. SINGULAIR [Concomitant]
  5. OXYBUTYNIN [Concomitant]
  6. ALBUTEROL [Concomitant]

REACTIONS (5)
  - ASTHMA [None]
  - DYSPNOEA [None]
  - HYPERSENSITIVITY [None]
  - NOCTURNAL DYSPNOEA [None]
  - WHEEZING [None]
